FAERS Safety Report 5467352-5 (Version None)
Quarter: 2007Q3

REPORT INFORMATION
  Report Type: 
  Country: None (occurrence: None)
  Receive Date: 20070925
  Receipt Date: 20070913
  Transmission Date: 20080115
  Serious: Yes (Other)
  Sender: FDA-Public Use
  Company Number: GB-PFIZER INC-2007076920

PATIENT
  Age: 49 Year
  Sex: Female

DRUGS (5)
  1. CHAMPIX [Suspect]
     Indication: SMOKING CESSATION THERAPY
     Route: 048
     Dates: start: 20070612, end: 20070801
  2. AMITRIPTYLINE HCL [Concomitant]
     Indication: MUSCLE RELAXANT THERAPY
     Route: 048
  3. BUPRENORPHINE HCL [Concomitant]
     Indication: THYROID PAIN
     Route: 061
  4. FUROSEMIDE [Concomitant]
     Indication: THYROID PAIN
     Route: 048
  5. LEVOTHYROXINE SODIUM [Concomitant]
     Indication: THYROID PAIN
     Route: 048

REACTIONS (3)
  - DEPRESSION [None]
  - NAUSEA [None]
  - SUICIDAL BEHAVIOUR [None]
